FAERS Safety Report 8812468 (Version 2)
Quarter: 2012Q4

REPORT INFORMATION
  Report Type: 
  Country: US (occurrence: US)
  Receive Date: 20120927
  Receipt Date: 20121106
  Transmission Date: 20130627
  Serious: No
  Sender: FDA-Public Use
  Company Number: US-ASTRAZENECA-2012SE72063

PATIENT
  Age: 67 Year
  Sex: Female

DRUGS (5)
  1. PULMICORT FLEXHALER [Suspect]
     Route: 055
  2. CYMBALTA [Concomitant]
  3. FLEXERIL [Concomitant]
  4. FENTANYL [Concomitant]
  5. AMBIEN CR [Concomitant]

REACTIONS (4)
  - Memory impairment [Unknown]
  - Fibromyalgia [Unknown]
  - Pain [Unknown]
  - Arthritis [Unknown]
